FAERS Safety Report 10363033 (Version 1)
Quarter: 2014Q1

REPORT INFORMATION
  Report Type: Report from Study
  Country: US (occurrence: None)
  Receive Date: 20140306
  Receipt Date: 20140306
  Transmission Date: 20141002
  Serious: Yes (Hospitalization)
  Sender: FDA-Public Use
  Company Number: 163-21880-13054840

PATIENT
  Age: 64 Year
  Sex: Female
  Weight: 72.1 kg

DRUGS (5)
  1. REVLIMID (LENALIDOMIDE) (CAPSULES) [Suspect]
     Indication: PLASMA CELL MYELOMA
     Dosage: 25 MG, 21 IN 28 D
     Route: 048
     Dates: start: 20130425, end: 20130515
  2. DEXAMETHASONE (DEXAMETHASONE) (TABLETS) [Suspect]
     Indication: PLASMA CELL MYELOMA
     Dosage: 40 MG, 4 IN 28 D, PO
     Route: 048
     Dates: start: 20130425, end: 20130516
  3. MLN 9708/PLACEBO [Suspect]
     Indication: PLASMA CELL MYELOMA
     Dosage: 4 MG, 3 IN 28 D
     Route: 048
     Dates: start: 20130425, end: 20130509
  4. OXYCODONE [Concomitant]
  5. NEURONTIN (GABAPENTIN) [Concomitant]

REACTIONS (1)
  - Herpes zoster [None]
